FAERS Safety Report 5960104-9 (Version None)
Quarter: 2008Q4

REPORT INFORMATION
  Report Type: 
  Country: None (occurrence: None)
  Receive Date: 20081118
  Receipt Date: 20081118
  Transmission Date: 20090506
  Serious: No
  Sender: FDA-Public Use
  Company Number: None

PATIENT
  Age: 62 Year
  Sex: Male
  Weight: 99.7913 kg

DRUGS (1)
  1. SOMPRAZ20 20MG SUN PHARACEUTICAL INDUSTRIES [Suspect]
     Indication: GASTROOESOPHAGEAL REFLUX DISEASE
     Dosage: 1 TABLET EVERYDAY PO
     Route: 048
     Dates: start: 20081016, end: 20081107

REACTIONS (4)
  - DISCOMFORT [None]
  - DRUG INEFFECTIVE [None]
  - PAIN [None]
  - PRODUCT QUALITY ISSUE [None]
